FAERS Safety Report 14262857 (Version 3)
Quarter: 2018Q1

REPORT INFORMATION
  Report Type: Report from Study
  Country: US (occurrence: US)
  Receive Date: 20171208
  Receipt Date: 20180308
  Transmission Date: 20180508
  Serious: No
  Sender: FDA-Public Use
  Company Number: US-AMGEN-USASL2017181654

PATIENT
  Sex: Female

DRUGS (1)
  1. ENBREL [Suspect]
     Active Substance: ETANERCEPT
     Indication: RHEUMATOID ARTHRITIS
     Dosage: 50 MG, QWK
     Route: 065

REACTIONS (14)
  - Pain in extremity [Unknown]
  - Injection site rash [Unknown]
  - Injection site reaction [Recovered/Resolved]
  - Peripheral swelling [Unknown]
  - Injection site erythema [Unknown]
  - Skin disorder [Unknown]
  - Skin fissures [Unknown]
  - Injection site induration [Unknown]
  - Injection site swelling [Unknown]
  - Rash [Unknown]
  - Injection site pruritus [Unknown]
  - Injection site nodule [Unknown]
  - Mass [Unknown]
  - Wrong technique in product usage process [Unknown]
